FAERS Safety Report 6541367-8 (Version None)
Quarter: 2010Q1

REPORT INFORMATION
  Report Type: 
  Country: None (occurrence: None)
  Receive Date: 20100118
  Receipt Date: 20100111
  Transmission Date: 20100710
  Serious: Yes (Other)
  Sender: FDA-Public Use
  Company Number: PHHY2010FR01524

PATIENT
  Sex: Female

DRUGS (3)
  1. VOLTAREN [Suspect]
     Indication: ANAL FISSURE
     Dosage: 75 MG, BID
     Route: 048
     Dates: start: 20091217, end: 20091218
  2. IXPRIM [Suspect]
     Indication: ANAL FISSURE
     Dosage: 1 DF, TID
     Route: 048
     Dates: start: 20091217, end: 20091218
  3. OMEPRAZOLE [Concomitant]
     Dosage: 1 DF, ONCE/SINGLE
     Dates: start: 20091217

REACTIONS (5)
  - DISABILITY [None]
  - FATIGUE [None]
  - MUSCLE CONTRACTIONS INVOLUNTARY [None]
  - MYALGIA [None]
  - MYOCLONUS [None]
